FAERS Safety Report 21450854 (Version 2)
Quarter: 2022Q4

REPORT INFORMATION
  Report Type: Spontaneous
  Country: DE (occurrence: DE)
  Receive Date: 20221013
  Receipt Date: 20221019
  Transmission Date: 20230112
  Serious: No
  Sender: FDA-Public Use
  Company Number: DE-PFIZER INC-202201219340

PATIENT
  Sex: Female

DRUGS (1)
  1. PAXLOVID [Suspect]
     Active Substance: NIRMATRELVIR\RITONAVIR
     Indication: COVID-19 treatment
     Dosage: ONLY 1 TABLET

REACTIONS (4)
  - Incorrect dose administered [Unknown]
  - Poor quality product administered [Unknown]
  - Product colour issue [Unknown]
  - Product prescribing error [Unknown]
